FAERS Safety Report 9721185 (Version 1)
Quarter: 2013Q4

REPORT INFORMATION
  Report Type: Spontaneous
  Country: US (occurrence: US)
  Receive Date: 20131129
  Receipt Date: 20131129
  Transmission Date: 20140711
  Serious: No
  Sender: FDA-Public Use
  Company Number: US-PFIZER INC-2013339937

PATIENT
  Age: 67 Year
  Sex: Male
  Weight: 90.7 kg

DRUGS (1)
  1. NICOTROL INHALER [Suspect]
     Indication: SMOKING CESSATION THERAPY
     Dosage: 10 MG, UNK

REACTIONS (3)
  - Drug ineffective [Unknown]
  - Dysgeusia [Unknown]
  - Product quality issue [Unknown]
